FAERS Safety Report 4461395-6 (Version None)
Quarter: 2004Q3

REPORT INFORMATION
  Report Type: 
  Country: None (occurrence: None)
  Receive Date: 20040928
  Receipt Date: 20030325
  Transmission Date: 20050211
  Serious: Yes (Hospitalization)
  Sender: FDA-Public Use
  Company Number: PHHO2003NL03963

PATIENT
  Age: 52 Year
  Sex: Male
  Weight: 88 kg

DRUGS (3)
  1. TEGASEROD VS PLACEBO [Suspect]
     Indication: CONSTIPATION
     Dosage: 6 MG, BID
     Route: 048
     Dates: start: 20020218, end: 20021201
  2. RENNIE [Concomitant]
  3. FLURAZEPAM [Concomitant]

REACTIONS (2)
  - ANAL FISTULA [None]
  - FISTULA REPAIR [None]
